FAERS Safety Report 14535116 (Version 2)
Quarter: 2018Q2

REPORT INFORMATION
  Report Type: Spontaneous
  Country: JP (occurrence: JP)
  Receive Date: 20180215
  Receipt Date: 20180420
  Transmission Date: 20180711
  Serious: Yes (Hospitalization, Other)
  Sender: FDA-Public Use
  Company Number: JP-JNJFOC-20180120978

PATIENT
  Age: 81 Year
  Sex: Female

DRUGS (4)
  1. AZUNOL [Concomitant]
     Active Substance: SODIUM GUALENATE
     Route: 048
     Dates: start: 20171228
  2. K SUPPLY [Concomitant]
     Active Substance: POTASSIUM CHLORIDE
     Dosage: DAILY DOSE 2T
     Route: 048
  3. CELECOXIB. [Concomitant]
     Active Substance: CELECOXIB
     Dosage: DAILY DOSE 2 T
     Route: 048
  4. XARELTO [Suspect]
     Active Substance: RIVAROXABAN
     Indication: ATRIAL FIBRILLATION
     Dosage: 1 T
     Route: 048
     Dates: start: 20171214, end: 20180102

REACTIONS (2)
  - Drug-induced liver injury [Recovered/Resolved]
  - Cholelithiasis [Recovering/Resolving]

NARRATIVE: CASE EVENT DATE: 20171225
